FAERS Safety Report 5864410-8 (Version None)
Quarter: 2008Q3

REPORT INFORMATION
  Report Type: 
  Country: None (occurrence: None)
  Receive Date: 20080829
  Receipt Date: 20080818
  Transmission Date: 20090109
  Serious: Yes (Death, Life-Threatening, Other)
  Sender: FDA-Public Use
  Company Number: JP-ELI_LILLY_AND_COMPANY-JP200808003715

PATIENT
  Age: 69 Year
  Sex: Male

DRUGS (4)
  1. GEMZAR [Suspect]
     Indication: TRANSITIONAL CELL CANCER OF THE RENAL PELVIS AND URETER RECURRENT
     Route: 042
     Dates: start: 20050501
  2. GEMZAR [Suspect]
     Dosage: 120 MG, UNK
     Route: 042
  3. CISPLATIN [Concomitant]
     Indication: TRANSITIONAL CELL CANCER OF THE RENAL PELVIS AND URETER RECURRENT
     Route: 042
     Dates: start: 20050501
  4. THERAPEUTIC RADIOPHARMACEUTICALS [Concomitant]
     Indication: METASTASES TO CENTRAL NERVOUS SYSTEM
     Dates: start: 20060101

REACTIONS (6)
  - BONE MARROW FAILURE [None]
  - DISSEMINATED INTRAVASCULAR COAGULATION [None]
  - INTESTINAL ISCHAEMIA [None]
  - METASTASES TO CENTRAL NERVOUS SYSTEM [None]
  - METASTASES TO LIVER [None]
  - METASTASES TO LUNG [None]
